FAERS Safety Report 24028913 (Version 1)
Quarter: 2024Q2

REPORT INFORMATION
  Report Type: Spontaneous
  Country: US (occurrence: None)
  Receive Date: 20240627
  Receipt Date: 20240627
  Transmission Date: 20240716
  Serious: Yes (Life-Threatening, Disabling)
  Sender: FDA-Public Use
  Company Number: None

PATIENT
  Age: 68 Year
  Sex: Female
  Weight: 67.05 kg

DRUGS (18)
  1. LOSARTAN POTASSIUM [Suspect]
     Active Substance: LOSARTAN POTASSIUM
     Indication: Hypertension
  2. LOSARTAN [Concomitant]
     Active Substance: LOSARTAN
  3. METOPROLOL [Concomitant]
     Active Substance: METOPROLOL
  4. METFORMIN [Concomitant]
     Active Substance: METFORMIN HYDROCHLORIDE
  5. ATORVASTATIN [Concomitant]
     Active Substance: ATORVASTATIN
  6. HUMALOG [Concomitant]
     Active Substance: INSULIN LISPRO
  7. TRESIBA [Concomitant]
     Active Substance: INSULIN DEGLUDEC
  8. JARDIANCE [Concomitant]
     Active Substance: EMPAGLIFLOZIN
  9. migraine excedrin [Concomitant]
  10. TEA [Concomitant]
     Active Substance: TEA LEAF
  11. MATRICARIA RECUTITA [Concomitant]
     Active Substance: MATRICARIA RECUTITA
  12. METHYLCOBALAMIN [Concomitant]
     Active Substance: METHYLCOBALAMIN
  13. PYRIDOXINE HYDROCHLORIDE [Concomitant]
     Active Substance: PYRIDOXINE HYDROCHLORIDE
  14. IRON [Concomitant]
     Active Substance: IRON
  15. ZINC [Concomitant]
     Active Substance: PYRITHIONE ZINC\ZINC\ZINC CHLORIDE
  16. MAGNESIUM [Suspect]
     Active Substance: MAGNESIUM
  17. MAGNESIUM [Concomitant]
     Active Substance: MAGNESIUM
  18. OMEGA 3 [Concomitant]
     Active Substance: CAPSAICIN

REACTIONS (5)
  - Blood potassium increased [None]
  - Muscular weakness [None]
  - Paraesthesia [None]
  - Atrial fibrillation [None]
  - Fatigue [None]
